FAERS Safety Report 5470507-7 (Version None)
Quarter: 2007Q3

REPORT INFORMATION
  Report Type: 
  Country: None (occurrence: None)
  Receive Date: 20070820
  Receipt Date: 20070420
  Transmission Date: 20080115
  Serious: No
  Sender: FDA-Public Use
  Company Number: WAES 0704USA04492

PATIENT
  Age: 65 Year
  Sex: Female

DRUGS (4)
  1. JANUVIA [Suspect]
     Indication: TYPE 2 DIABETES MELLITUS
     Dosage: 100 MG/ DAILY/ PO
     Route: 048
     Dates: start: 20061212
  2. GLIMEPIRIDE [Concomitant]
  3. INSULIN [Concomitant]
  4. METFORMIN HCL [Concomitant]

REACTIONS (2)
  - FUNGAL INFECTION [None]
  - PH BODY FLUID ABNORMAL [None]
